FAERS Safety Report 5399292-4 (Version None)
Quarter: 2007Q3

REPORT INFORMATION
  Report Type: 
  Country: None (occurrence: None)
  Receive Date: 20070727
  Receipt Date: 20070720
  Transmission Date: 20080115
  Serious: Yes (Hospitalization)
  Sender: FDA-Public Use
  Company Number: US-AMGEN-US195181

PATIENT
  Sex: Male

DRUGS (1)
  1. FILGRASTIM [Suspect]
     Indication: PERIPHERAL BLOOD STEM CELL APHERESIS
     Route: 058
     Dates: start: 20060928, end: 20060928

REACTIONS (3)
  - BACK PAIN [None]
  - FEELING HOT [None]
  - WHITE BLOOD CELL COUNT INCREASED [None]
